FAERS Safety Report 7915340-9 (Version None)
Quarter: 2011Q4

REPORT INFORMATION
  Report Type: 
  Country: None (occurrence: None)
  Receive Date: 20111115
  Receipt Date: 20111031
  Transmission Date: 20120403
  Serious: Yes (Hospitalization, Other)
  Sender: FDA-Public Use
  Company Number: PHHY2011DE20632

PATIENT
  Sex: Female
  Weight: 75 kg

DRUGS (7)
  1. EXJADE [Suspect]
     Indication: MYELODYSPLASTIC SYNDROME
     Dosage: 1500 MG, QD
     Route: 048
     Dates: start: 20110202, end: 20110420
  2. PANTOPRAZOLE SODIUM [Concomitant]
     Dosage: 40 MG, QD
     Route: 048
     Dates: start: 20110222
  3. RAMIPRIL [Concomitant]
     Dosage: 2.5 MG, 1/2 DAILY
  4. KLIOGEST ^NOVO INDUSTRI^ [Concomitant]
  5. FLUTICASONE PROPIONATE/SALMETEROL [Concomitant]
  6. PULMICORT [Concomitant]
     Dates: start: 20050413
  7. OMEPRAZOLE [Concomitant]
     Dosage: 20 MG, BID
     Dates: start: 20110222

REACTIONS (14)
  - PYREXIA [None]
  - VOMITING [None]
  - HAEMOGLOBIN DECREASED [None]
  - BLOOD CREATININE INCREASED [None]
  - ABDOMINAL PAIN LOWER [None]
  - PLEURISY [None]
  - GASTROENTERITIS [None]
  - NAUSEA [None]
  - CONFUSIONAL STATE [None]
  - CRYING [None]
  - HALLUCINATION [None]
  - DIARRHOEA [None]
  - BRONCHOPNEUMONIA [None]
  - PAIN [None]
